FAERS Safety Report 9905449 (Version 1)
Quarter: 2014Q1

REPORT INFORMATION
  Report Type: Spontaneous
  Country: FR (occurrence: FR)
  Receive Date: 20140218
  Receipt Date: 20140218
  Transmission Date: 20141002
  Serious: Yes (Other)
  Sender: FDA-Public Use
  Company Number: FR-TEVA-463007ISR

PATIENT
  Sex: Male

DRUGS (2)
  1. COPAXONE [Suspect]
     Dosage: STARTED ONE YEAR AGO
     Route: 058
     Dates: start: 2013
  2. SEROPLEX [Concomitant]
     Dates: start: 20140209

REACTIONS (1)
  - Hepatocellular injury [Unknown]
